FAERS Safety Report 13610563 (Version 1)
Quarter: 2017Q2

REPORT INFORMATION
  Report Type: Spontaneous
  Country: US (occurrence: US)
  Receive Date: 20170605
  Receipt Date: 20170605
  Transmission Date: 20170830
  Serious: Yes (Other)
  Sender: FDA-Public Use
  Company Number: US-PFIZER INC-2017241422

PATIENT
  Age: 75 Year
  Sex: Female

DRUGS (1)
  1. TRIAZOLAM. [Suspect]
     Active Substance: TRIAZOLAM
     Indication: INSOMNIA
     Dosage: 2 MG, DAILY
     Route: 048

REACTIONS (3)
  - Intentional product use issue [Unknown]
  - Dependence [Unknown]
  - Prescribed overdose [Unknown]
